FAERS Safety Report 22867245 (Version 2)
Quarter: 2023Q4

REPORT INFORMATION
  Report Type: Spontaneous
  Country: US (occurrence: US)
  Receive Date: 20230825
  Receipt Date: 20231031
  Transmission Date: 20240110
  Serious: No
  Sender: FDA-Public Use
  Company Number: US-PFIZER INC-PV202300143198

PATIENT
  Age: 11 Year
  Sex: Female

DRUGS (1)
  1. GENOTROPIN [Suspect]
     Active Substance: SOMATROPIN
     Dosage: 2.3 MG, DAILY
     Dates: start: 2023

REACTIONS (2)
  - Injection site pain [Unknown]
  - Injection site discharge [Unknown]

NARRATIVE: CASE EVENT DATE: 20230101
